FAERS Safety Report 5478320-1 (Version None)
Quarter: 2007Q4

REPORT INFORMATION
  Report Type: 
  Country: None (occurrence: None)
  Receive Date: 20071005
  Receipt Date: 20070927
  Transmission Date: 20080405
  Serious: Yes (Other)
  Sender: FDA-Public Use
  Company Number: B0489836A

PATIENT
  Age: 36 Year
  Sex: Female

DRUGS (1)
  1. CARTIA XT [Suspect]
     Indication: ANTICOAGULANT THERAPY
     Dosage: 1TAB PER DAY
     Route: 048
     Dates: start: 20070722, end: 20070827

REACTIONS (2)
  - ABORTION SPONTANEOUS [None]
  - DRUG EXPOSURE DURING PREGNANCY [None]
